FAERS Safety Report 7941385-9 (Version None)
Quarter: 2011Q4

REPORT INFORMATION
  Report Type: 
  Country: None (occurrence: None)
  Receive Date: 20111122
  Receipt Date: 20111110
  Transmission Date: 20120403
  Serious: Yes (Other)
  Sender: FDA-Public Use
  Company Number: 2011P1010244

PATIENT
  Age: 17 Year
  Sex: Male

DRUGS (1)
  1. SOLODYN [Suspect]

REACTIONS (2)
  - CONVULSION [None]
  - AMNESIA [None]
